FAERS Safety Report 12723923 (Version 1)
Quarter: 2016Q3

REPORT INFORMATION
  Report Type: Spontaneous
  Country: US (occurrence: US)
  Receive Date: 20160907
  Receipt Date: 20160907
  Transmission Date: 20161109
  Serious: Yes (Disabling, Other)
  Sender: FDA-Public Use
  Company Number: None

PATIENT
  Age: 2 Year
  Sex: Male
  Weight: 22.5 kg

DRUGS (2)
  1. FERROUS SULFATE. [Suspect]
     Active Substance: FERROUS SULFATE
     Indication: AUTISM
     Route: 048
     Dates: start: 20150716, end: 20160903
  2. FERROUS SULFATE. [Suspect]
     Active Substance: FERROUS SULFATE
     Indication: BLOOD IRON DECREASED
     Route: 048
     Dates: start: 20150716, end: 20160903

REACTIONS (9)
  - Diarrhoea [None]
  - Dysuria [None]
  - Urticaria [None]
  - Retching [None]
  - Gastric disorder [None]
  - Faeces discoloured [None]
  - Infection [None]
  - Vomiting [None]
  - Decreased appetite [None]

NARRATIVE: CASE EVENT DATE: 20160809
